FAERS Safety Report 17968611 (Version 1)
Quarter: 2020Q3

REPORT INFORMATION
  Report Type: Spontaneous
  Country: US (occurrence: US)
  Receive Date: 20200701
  Receipt Date: 20200701
  Transmission Date: 20201103
  Serious: No
  Sender: FDA-Public Use
  Company Number: US-BRISTOL-MYERS SQUIBB COMPANY-BMS-2020-052177

PATIENT
  Sex: Male
  Weight: 143.9 kg

DRUGS (1)
  1. YERVOY [Suspect]
     Active Substance: IPILIMUMAB
     Indication: RENAL CANCER
     Dosage: 1 MG/KG EVERY 21 DAYS IV OVER 30 MINUTES
     Route: 042
     Dates: start: 20200630

REACTIONS (1)
  - Accidental exposure to product [Unknown]
